FAERS Safety Report 6971474-7 (Version None)
Quarter: 2010Q3

REPORT INFORMATION
  Report Type: 
  Country: None (occurrence: None)
  Receive Date: 20100908
  Receipt Date: 20100830
  Transmission Date: 20110219
  Serious: Yes (Other)
  Sender: FDA-Public Use
  Company Number: CHPA2010US13880

PATIENT
  Age: 63 Year
  Sex: Male

DRUGS (1)
  1. MAALOX ADV MAXIMUM STRENGTH ANTACID/ANTIGAS (NCH) [Suspect]
     Indication: ABDOMINAL PAIN UPPER
     Dosage: UNK, UNK
     Route: 048
     Dates: start: 20100504, end: 20100514

REACTIONS (2)
  - COELIAC DISEASE [None]
  - OFF LABEL USE [None]
